FAERS Safety Report 23595954 (Version 1)
Quarter: 2024Q1

REPORT INFORMATION
  Report Type: Spontaneous
  Country: US (occurrence: None)
  Receive Date: 20240304
  Receipt Date: 20240304
  Transmission Date: 20240409
  Serious: Yes (Hospitalization, Disabling)
  Sender: FDA-Public Use
  Company Number: None

PATIENT
  Age: 82 Year
  Sex: Female
  Weight: 46.72 kg

DRUGS (10)
  1. PROLIA [Suspect]
     Active Substance: DENOSUMAB
     Indication: Osteoporosis
     Dosage: OTHER FREQUENCY : EVERY 6 MONTHS;?
     Route: 058
     Dates: start: 20220916
  2. FERROUS SULFATE [Concomitant]
     Active Substance: FERROUS SULFATE
  3. LISINOPRIL [Concomitant]
     Active Substance: LISINOPRIL
  4. MINERALS\VITAMINS [Concomitant]
     Active Substance: MINERALS\VITAMINS
  5. TRELEGY ELLIPTA [Concomitant]
     Active Substance: FLUTICASONE FUROATE\UMECLIDINIUM BROMIDE\VILANTEROL TRIFENATATE
  6. ARMODAFINIL [Concomitant]
     Active Substance: ARMODAFINIL
  7. Lortatdine [Concomitant]
  8. ALBUTEROL [Concomitant]
     Active Substance: ALBUTEROL
  9. ELIQUIS [Concomitant]
     Active Substance: APIXABAN
  10. METOPROLOL [Concomitant]
     Active Substance: METOPROLOL

REACTIONS (7)
  - Fall [None]
  - Upper limb fracture [None]
  - Cervical vertebral fracture [None]
  - Pelvic fracture [None]
  - Subarachnoid haemorrhage [None]
  - Loss of consciousness [None]
  - Skin laceration [None]

NARRATIVE: CASE EVENT DATE: 20231212
